FAERS Safety Report 6150683-3 (Version None)
Quarter: 2009Q2

REPORT INFORMATION
  Report Type: 
  Country: None (occurrence: None)
  Receive Date: 20090408
  Receipt Date: 20090408
  Transmission Date: 20091009
  Serious: Yes (Hospitalization)
  Sender: FDA-Public Use
  Company Number: None

PATIENT
  Age: 49 Year
  Sex: Female
  Weight: 54.8852 kg

DRUGS (2)
  1. TYGACIL [Suspect]
     Indication: WOUND INFECTION
     Dosage: 50MG Q12HOURS IV
     Route: 042
     Dates: start: 20090330, end: 20090407
  2. TYGACIL [Suspect]

REACTIONS (4)
  - BLOOD AMYLASE INCREASED [None]
  - LIPASE INCREASED [None]
  - NAUSEA [None]
  - VOMITING [None]
